FAERS Safety Report 15886552 (Version 8)
Quarter: 2019Q2

REPORT INFORMATION
  Report Type: Report from Study
  Country: US (occurrence: US)
  Receive Date: 20190129
  Receipt Date: 20190513
  Transmission Date: 20190711
  Serious: Yes (Hospitalization)
  Sender: FDA-Public Use
  Company Number: US-ACTELION-A-NJ2018-168352

PATIENT
  Age: 64 Year
  Sex: Male
  Weight: 86.62 kg

DRUGS (5)
  1. VELETRI [Suspect]
     Active Substance: EPOPROSTENOL
     Dosage: 9.028 NG/KG, PER MIN
     Route: 042
     Dates: start: 20180220
  2. ELIQUIS [Concomitant]
     Active Substance: APIXABAN
  3. VELETRI [Suspect]
     Active Substance: EPOPROSTENOL
     Dosage: 9.144 NG/KG, PER MIN
     Route: 042
     Dates: start: 20180205
  4. VELETRI [Suspect]
     Active Substance: EPOPROSTENOL
     Dosage: 8.7 NG/KG, PER MIN
     Route: 042
  5. VELETRI [Suspect]
     Active Substance: EPOPROSTENOL
     Indication: PULMONARY ARTERIAL HYPERTENSION
     Dosage: 6 NG/KG, PER MIN
     Route: 042

REACTIONS (9)
  - Pyrexia [Unknown]
  - Device alarm issue [Not Recovered/Not Resolved]
  - Fatigue [Recovered/Resolved]
  - Liver transplant [Unknown]
  - Hospitalisation [Unknown]
  - Headache [Recovered/Resolved]
  - Device occlusion [Not Recovered/Not Resolved]
  - Nausea [Recovered/Resolved]
  - Vomiting [Unknown]

NARRATIVE: CASE EVENT DATE: 20180219
